FAERS Safety Report 13615313 (Version 1)
Quarter: 2017Q2

REPORT INFORMATION
  Report Type: Report from Study
  Country: FR (occurrence: FR)
  Receive Date: 20170606
  Receipt Date: 20170606
  Transmission Date: 20170830
  Serious: Yes (Hospitalization, Other)
  Sender: FDA-Public Use
  Company Number: FR-ROCHE-1874272

PATIENT
  Age: 56 Year
  Sex: Female
  Weight: 71 kg

DRUGS (3)
  1. VEMURAFENIB [Suspect]
     Active Substance: VEMURAFENIB
     Indication: METASTASES TO CENTRAL NERVOUS SYSTEM
     Dosage: CYCLE NUMBER 1
     Route: 048
     Dates: start: 20161215, end: 20161225
  2. CORTANCYL [Concomitant]
     Active Substance: PREDNISONE
     Indication: METASTASES TO CENTRAL NERVOUS SYSTEM
     Route: 065
  3. COBIMETINIB [Suspect]
     Active Substance: COBIMETINIB
     Indication: METASTASES TO CENTRAL NERVOUS SYSTEM
     Route: 048
     Dates: start: 20161215, end: 20161219

REACTIONS (2)
  - Retinal oedema [Recovered/Resolved]
  - Generalised erythema [Recovered/Resolved]

NARRATIVE: CASE EVENT DATE: 20161217
